FAERS Safety Report 8573820-X (Version None)
Quarter: 2012Q3

REPORT INFORMATION
  Report Type: 
  Country: None (occurrence: None)
  Receive Date: 20120806
  Receipt Date: 20110805
  Transmission Date: 20120928
  Serious: No
  Sender: FDA-Public Use
  Company Number: US-GLAXOSMITHKLINE-A0939921A

PATIENT
  Age: 82 Year
  Sex: Female

DRUGS (8)
  1. FLUTICASONE PROPIONATE [Suspect]
     Indication: ASTHMA
     Dosage: 1PUFF TWICE PER DAY
     Route: 055
  2. LOSARTAN POTASSIUM [Concomitant]
  3. VENTOLIN HFA [Concomitant]
  4. OXYGEN [Concomitant]
  5. CLONIDINE [Concomitant]
  6. TRIAMTERENE AND HYDROCHLOROTHIAZIDE [Concomitant]
  7. SINGULAIR [Concomitant]
  8. DOXYCYCLINE HCL [Concomitant]

REACTIONS (6)
  - COUGH [None]
  - APHONIA [None]
  - DYSPNOEA [None]
  - DYSPHONIA [None]
  - BRONCHOSTENOSIS [None]
  - PRODUCT QUALITY ISSUE [None]
